FAERS Safety Report 9637148 (Version 1)
Quarter: 2013Q4

REPORT INFORMATION
  Report Type: Spontaneous
  Country: US (occurrence: US)
  Receive Date: 20131022
  Receipt Date: 20131022
  Transmission Date: 20140711
  Serious: Yes (Other)
  Sender: FDA-Public Use
  Company Number: US-JNJFOC-20131005991

PATIENT
  Sex: 0

DRUGS (2)
  1. DIPHENHYDRAMINE [Suspect]
     Indication: PRODUCT USED FOR UNKNOWN INDICATION
     Route: 065
  2. DATURA STRAMONIUM [Suspect]
     Indication: PRODUCT USED FOR UNKNOWN INDICATION
     Route: 065

REACTIONS (7)
  - Drug abuse [Unknown]
  - Confusional state [Unknown]
  - Hallucination [Unknown]
  - Mydriasis [Unknown]
  - Somnolence [Unknown]
  - Tachycardia [Unknown]
  - Agitation [Unknown]
